FAERS Safety Report 4902184-5 (Version None)
Quarter: 2006Q1

REPORT INFORMATION
  Report Type: 
  Country: None (occurrence: None)
  Receive Date: 20060206
  Receipt Date: 20050308
  Transmission Date: 20060701
  Serious: Yes (Hospitalization)
  Sender: FDA-Public Use
  Company Number: US-MERCK-0503USA01347

PATIENT
  Age: 42 Year
  Sex: Female
  Weight: 55 kg

DRUGS (1)
  1. VIOXX [Suspect]
     Indication: ARTHRITIS
     Route: 048
     Dates: start: 20020101, end: 20040901

REACTIONS (22)
  - ABDOMINAL PAIN [None]
  - ADVERSE EVENT [None]
  - BONE PAIN [None]
  - CARDIAC DISORDER [None]
  - CARDIAC FLUTTER [None]
  - CONTUSION [None]
  - CONVULSION [None]
  - FALL [None]
  - HEADACHE [None]
  - HEART RATE INCREASED [None]
  - INJURY [None]
  - LOSS OF CONSCIOUSNESS [None]
  - MUSCULOSKELETAL CHEST PAIN [None]
  - MUSCULOSKELETAL DISORDER [None]
  - PALPITATIONS [None]
  - SHOULDER PAIN [None]
  - SUPRAPUBIC PAIN [None]
  - SUPRAVENTRICULAR EXTRASYSTOLES [None]
  - SYNCOPE [None]
  - THROMBOPHLEBITIS [None]
  - URINARY TRACT INFECTION [None]
  - WEIGHT DECREASED [None]
